FAERS Safety Report 12421653 (Version 2)
Quarter: 2016Q2

REPORT INFORMATION
  Report Type: Spontaneous
  Country: US (occurrence: US)
  Receive Date: 20160531
  Receipt Date: 20160615
  Transmission Date: 20160815
  Serious: Yes (Hospitalization, Other)
  Sender: FDA-Public Use
  Company Number: US-MALLINCKRODT-T201602037

PATIENT
  Age: 53 Year
  Sex: Female

DRUGS (2)
  1. GABLOFEN [Suspect]
     Active Substance: BACLOFEN
     Indication: PAIN
     Dosage: UNK
     Route: 037
  2. DILAUDID [Suspect]
     Active Substance: HYDROMORPHONE HYDROCHLORIDE
     Indication: PAIN
     Dosage: UNK
     Route: 037

REACTIONS (8)
  - Off label use [Unknown]
  - Abscess [Recovered/Resolved]
  - Memory impairment [Unknown]
  - Bacterial sepsis [Recovered/Resolved]
  - Implant site infection [Recovered/Resolved]
  - Aggression [Unknown]
  - Device issue [Unknown]
  - Adhesion [Unknown]

NARRATIVE: CASE EVENT DATE: 201512
